FAERS Safety Report 11720499 (Version 2)
Quarter: 2015Q4

REPORT INFORMATION
  Report Type: Spontaneous
  Country: US (occurrence: US)
  Receive Date: 20151110
  Receipt Date: 20151203
  Transmission Date: 20160304
  Serious: Yes (Other)
  Sender: FDA-Public Use
  Company Number: US-TARO-2015TAR01042

PATIENT
  Age: 10 Year
  Sex: Female
  Weight: 30.84 kg

DRUGS (4)
  1. FISH OIL OMEGA 3 GUMMIES [Concomitant]
  2. LORATADINE SYRUP (LORATADINE ORAL SOLUTION USP) 5MG/5ML [Suspect]
     Active Substance: LORATADINE
     Indication: HEADACHE
     Dosage: 1 TSP, 1X/DAY
     Route: 048
     Dates: start: 201409, end: 201409
  3. LORATADINE SYRUP (LORATADINE ORAL SOLUTION USP) 5MG/5ML [Suspect]
     Active Substance: LORATADINE
     Indication: RHINORRHOEA
     Dosage: 1 TSP, 1X/DAY
     Route: 048
     Dates: start: 201409, end: 201409
  4. CHILDRENS VITAMIN [Concomitant]

REACTIONS (6)
  - Off label use [Recovered/Resolved]
  - Coeliac disease [Recovering/Resolving]
  - Lactose intolerance [Recovering/Resolving]
  - Pollakiuria [Recovering/Resolving]
  - Constipation [Recovering/Resolving]
  - Abdominal pain upper [Recovering/Resolving]

NARRATIVE: CASE EVENT DATE: 201409
